FAERS Safety Report 9279195 (Version 2)
Quarter: 2013Q1

REPORT INFORMATION
  Report Type: Spontaneous
  Country: FR (occurrence: None)
  Receive Date: 20120928
  Receipt Date: 20121005
  Transmission Date: 20140127
  Serious: No
  Sender: FDA-Public Use
  Company Number: 218305

PATIENT
  Sex: Female
  Weight: 80 kg

DRUGS (1)
  1. INNOHEP (TINZAPARIN SODIUM) [Suspect]
     Indication: DEEP VEIN THROMBOSIS
     Route: 058
     Dates: start: 20120704

REACTIONS (1)
  - Maternal exposure during pregnancy [None]
